FAERS Safety Report 6645723-9 (Version None)
Quarter: 2010Q1

REPORT INFORMATION
  Report Type: 
  Country: None (occurrence: None)
  Receive Date: 20100318
  Receipt Date: 20100318
  Transmission Date: 20100710
  Serious: Yes (Hospitalization)
  Sender: FDA-Public Use
  Company Number: None

PATIENT
  Sex: Male
  Weight: 64 kg

DRUGS (2)
  1. CISPLATIN [Suspect]
     Dosage: 100 MG
     Dates: end: 20100129
  2. ETOPOSIDE [Suspect]
     Dosage: 378 MG
     Dates: end: 20100131

REACTIONS (20)
  - ARTERIAL OCCLUSIVE DISEASE [None]
  - ASTHENIA [None]
  - ATRIAL FIBRILLATION [None]
  - BLOOD ALBUMIN DECREASED [None]
  - DECREASED APPETITE [None]
  - DEHYDRATION [None]
  - DIZZINESS [None]
  - FATIGUE [None]
  - HAEMOGLOBIN DECREASED [None]
  - HYPOTENSION [None]
  - MALAISE [None]
  - MALIGNANT NEOPLASM PROGRESSION [None]
  - PAIN [None]
  - PERFORMANCE STATUS DECREASED [None]
  - PULMONARY CONGESTION [None]
  - PULMONARY VASCULAR DISORDER [None]
  - REFUSAL OF TREATMENT BY PATIENT [None]
  - SMALL CELL LUNG CANCER EXTENSIVE STAGE [None]
  - TACHYCARDIA [None]
  - WEIGHT DECREASED [None]
